FAERS Safety Report 17539039 (Version 1)
Quarter: 2020Q1

REPORT INFORMATION
  Report Type: Spontaneous
  Country: US (occurrence: US)
  Receive Date: 20200313
  Receipt Date: 20200313
  Transmission Date: 20200409
  Serious: Yes (Hospitalization)
  Sender: FDA-Public Use
  Company Number: US-FLEXION THERAPEUTICS, INC.-2020FLS000033

PATIENT
  Age: 72 Year
  Sex: Female

DRUGS (3)
  1. ZILRETTA [Suspect]
     Active Substance: TRIAMCINOLONE ACETONIDE
     Indication: PRODUCT USED FOR UNKNOWN INDICATION
     Dosage: BILATERAL KNEE INJECTIONS
     Route: 014
     Dates: start: 201912, end: 201912
  2. ZILRETTA [Suspect]
     Active Substance: TRIAMCINOLONE ACETONIDE
     Indication: TENDON INJURY
     Dosage: LEFT SHOULDER
     Route: 014
     Dates: start: 2019, end: 2019
  3. ZILRETTA [Suspect]
     Active Substance: TRIAMCINOLONE ACETONIDE
     Dosage: BILATERAL KNEE INJECTIONS
     Route: 014
     Dates: start: 201909, end: 201909

REACTIONS (7)
  - Blood potassium increased [Unknown]
  - Blood creatinine abnormal [Unknown]
  - Product use in unapproved indication [Recovered/Resolved]
  - Blood glucose decreased [Unknown]
  - Lipase increased [Unknown]
  - Abdominal pain upper [Recovering/Resolving]
  - Dehydration [Unknown]

NARRATIVE: CASE EVENT DATE: 20200225
